FAERS Safety Report 20884560 (Version 2)
Quarter: 2022Q3

REPORT INFORMATION
  Report Type: Spontaneous
  Country: US (occurrence: US)
  Receive Date: 20220527
  Receipt Date: 20220817
  Transmission Date: 20221027
  Serious: No
  Sender: FDA-Public Use
  Company Number: US-BRISTOL-MYERS SQUIBB COMPANY-2022-048432

PATIENT
  Age: 57 Year
  Weight: 133.3 kg

DRUGS (2)
  1. REVLIMID [Suspect]
     Active Substance: LENALIDOMIDE
     Indication: Plasma cell myeloma
     Dosage: DAYS 1-21, THEN 7 DAYS OFF
     Route: 048
     Dates: start: 20210216
  2. REVLIMID [Suspect]
     Active Substance: LENALIDOMIDE
     Dosage: D1-21 EVERY 28 DAYS
     Route: 048
     Dates: start: 20210216

REACTIONS (2)
  - COVID-19 [Unknown]
  - Accidental overdose [Unknown]
